FAERS Safety Report 9654531 (Version 1)
Quarter: 2013Q4

REPORT INFORMATION
  Report Type: Spontaneous
  Country: FR (occurrence: FR)
  Receive Date: 20131029
  Receipt Date: 20131029
  Transmission Date: 20140711
  Serious: Yes (Hospitalization)
  Sender: FDA-Public Use
  Company Number: FR-ROCHE-1295479

PATIENT
  Age: 79 Year
  Sex: Male

DRUGS (4)
  1. LUCENTIS [Suspect]
     Indication: PRODUCT USED FOR UNKNOWN INDICATION
     Route: 050
  2. EPITOMAX [Concomitant]
  3. KARDEGIC [Concomitant]
  4. NEBIVOLOL [Concomitant]

REACTIONS (1)
  - Temporal arteritis [Not Recovered/Not Resolved]
